FAERS Safety Report 9211144 (Version 1)
Quarter: 2013Q2

REPORT INFORMATION
  Report Type: Spontaneous
  Country: GB (occurrence: GB)
  Receive Date: 20130404
  Receipt Date: 20130404
  Transmission Date: 20140414
  Serious: Yes (Other)
  Sender: FDA-Public Use
  Company Number: GB-PFIZER INC-2008009215JJ

PATIENT
  Age: 77 Year
  Sex: Female
  Weight: 78 kg

DRUGS (5)
  1. IBUPROFEN [Suspect]
     Indication: BACK PAIN
     Dosage: 200 MG, 3X/DAY
     Route: 048
     Dates: start: 200510
  2. METFORMIN [Concomitant]
     Dosage: 1500 MG
     Route: 048
  3. PERINDOPRIL [Concomitant]
     Dosage: 8 MG
     Route: 048
  4. SIMVASTATIN [Concomitant]
     Route: 048
  5. HUMALOG [Concomitant]
     Dosage: 12 UNITS, TWICE DAILY

REACTIONS (1)
  - Hypoglycaemia [Recovered/Resolved]
